FAERS Safety Report 18007514 (Version 2)
Quarter: 2020Q3

REPORT INFORMATION
  Report Type: Spontaneous
  Country: CH (occurrence: CH)
  Receive Date: 20200710
  Receipt Date: 20200908
  Transmission Date: 20201103
  Serious: Yes (Other)
  Sender: FDA-Public Use
  Company Number: CH-AMERICAN REGENT INC-2020001381

PATIENT
  Age: 32 Year
  Sex: Female

DRUGS (2)
  1. FERINJECT [Suspect]
     Active Substance: FERRIC CARBOXYMALTOSE
     Indication: SERUM FERRITIN ABNORMAL
     Dosage: 500 MILLIGRAM, 2 TOTAL
     Dates: start: 20200610, end: 20200610
  2. FERINJECT [Suspect]
     Active Substance: FERRIC CARBOXYMALTOSE
     Indication: SECOND TRIMESTER PREGNANCY
     Dosage: 500 MILLIGRAM, 2 TOTAL
     Dates: start: 20200622, end: 20200622

REACTIONS (3)
  - Maternal exposure during pregnancy [Recovered/Resolved]
  - Abortion late [Recovered/Resolved]
  - Umbilical cord around neck [Unknown]

NARRATIVE: CASE EVENT DATE: 202006
